FAERS Safety Report 8599612 (Version 2)
Quarter: 2014Q1

REPORT INFORMATION
  Report Type: Spontaneous
  Country: US (occurrence: None)
  Receive Date: 20120323
  Receipt Date: 20130305
  Transmission Date: 20141002
  Serious: Yes (Other)
  Sender: FDA-Public Use
  Company Number: 163-21880-11072957

PATIENT
  Age: 78 Year
  Sex: Female

DRUGS (7)
  1. REVLIMID [Suspect]
     Indication: 5Q MINUS SYNDROME
     Dosage: 10 MG, DAILY X 21 DAYS, PO
     Route: 048
     Dates: start: 20110720
  2. HYDROCHLOROTHIAZIDE [Concomitant]
  3. TOPROL XL [Concomitant]
  4. MULTI-VITAMIN [Concomitant]
  5. FISH OIL (FISH OIL) [Concomitant]
  6. CALCIUM CARBONATE [Concomitant]
  7. ALLOPURINOL [Concomitant]

REACTIONS (4)
  - Pruritus generalised [None]
  - Eyelid oedema [None]
  - Rash [None]
  - Local swelling [None]
